FAERS Safety Report 17586105 (Version 1)
Quarter: 2020Q1

REPORT INFORMATION
  Report Type: Spontaneous
  Country: US (occurrence: US)
  Receive Date: 20200326
  Receipt Date: 20200326
  Transmission Date: 20200409
  Serious: Yes (Hospitalization)
  Sender: FDA-Public Use
  Company Number: None

PATIENT
  Sex: Female

DRUGS (1)
  1. ICATIBANT [Suspect]
     Active Substance: ICATIBANT ACETATE
     Indication: COMPLEMENT DEFICIENCY DISEASE
     Dosage: ?          OTHER FREQUENCY:AS NEEDED FOR HAE;?
     Route: 058
     Dates: start: 20200207

REACTIONS (3)
  - Condition aggravated [None]
  - Therapy cessation [None]
  - Abdominal pain [None]
